FAERS Safety Report 8867694 (Version 1)
Quarter: 2012Q4

REPORT INFORMATION
  Report Type: 
  Country: US (occurrence: US)
  Receive Date: 20121025
  Receipt Date: 20121025
  Transmission Date: 20130627
  Serious: No
  Sender: FDA-Public Use
  Company Number: US-AMGEN-USASP2012018220

PATIENT
  Age: 54 Year
  Sex: Female

DRUGS (1)
  1. ENBREL [Suspect]
     Indication: PRODUCT USED FOR UNKNOWN INDICATION
     Dosage: 50 mg, qwk
     Dates: start: 201201

REACTIONS (6)
  - Nail operation [Recovering/Resolving]
  - Exostosis [Recovering/Resolving]
  - Lymph node pain [Unknown]
  - Lymphadenopathy [Unknown]
  - Pruritus [Unknown]
  - Urticaria [Unknown]
